FAERS Safety Report 24578719 (Version 2)
Quarter: 2024Q4

REPORT INFORMATION
  Report Type: Spontaneous
  Country: JP (occurrence: JP)
  Receive Date: 20241105
  Receipt Date: 20241201
  Transmission Date: 20250115
  Serious: Yes (Death, Other)
  Sender: TAKEDA
  Company Number: JP-TAKEDA-2024TJP015912

PATIENT
  Age: 31 Year
  Sex: Male

DRUGS (4)
  1. LIVTENCITY [Suspect]
     Active Substance: MARIBAVIR
     Indication: Cytomegalovirus enterocolitis
     Dosage: 400 MILLIGRAM, BID
     Dates: start: 20240829, end: 20240918
  2. BELUMOSUDIL [Concomitant]
     Active Substance: BELUMOSUDIL
     Indication: Graft versus host disease in gastrointestinal tract
     Dosage: UNK
  3. RUXOLITINIB PHOSPHATE [Concomitant]
     Active Substance: RUXOLITINIB PHOSPHATE
     Indication: Graft versus host disease in gastrointestinal tract
     Dosage: UNK
  4. PREDNISOLONE [Concomitant]
     Active Substance: PREDNISOLONE
     Indication: Graft versus host disease in gastrointestinal tract
     Dosage: UNK

REACTIONS (3)
  - Graft versus host disease in gastrointestinal tract [Fatal]
  - Thrombotic microangiopathy [Fatal]
  - Ileus paralytic [Recovering/Resolving]

NARRATIVE: CASE EVENT DATE: 20240916
